FAERS Safety Report 24935004 (Version 2)
Quarter: 2025Q1

REPORT INFORMATION
  Report Type: Report from Study
  Country: US (occurrence: US)
  Receive Date: 20250206
  Receipt Date: 20250212
  Transmission Date: 20250408
  Serious: No
  Sender: JOHNSON AND JOHNSON
  Company Number: US-JNJFOC-20250153049

PATIENT
  Age: 70 Year
  Sex: Female

DRUGS (4)
  1. STELARA [Suspect]
     Active Substance: USTEKINUMAB
     Indication: Colitis ulcerative
     Route: 058
  2. STELARA [Suspect]
     Active Substance: USTEKINUMAB
  3. STELARA [Suspect]
     Active Substance: USTEKINUMAB
     Indication: Colitis ulcerative
     Route: 058
  4. STELARA [Suspect]
     Active Substance: USTEKINUMAB

REACTIONS (5)
  - Adverse event [Unknown]
  - Product dose omission issue [Unknown]
  - Device deployment issue [Unknown]
  - Device defective [Unknown]
  - Device issue [Unknown]

NARRATIVE: CASE EVENT DATE: 20250101
